FAERS Safety Report 17575732 (Version 1)
Quarter: 2020Q1

REPORT INFORMATION
  Report Type: Spontaneous
  Country: US (occurrence: US)
  Receive Date: 20200318
  Receipt Date: 20200318
  Transmission Date: 20200409
  Serious: No
  Sender: FDA-Public Use
  Company Number: None

PATIENT
  Sex: Female

DRUGS (13)
  1. EZETIMBE [Concomitant]
     Active Substance: EZETIMIBE
  2. FLAX SEED [Concomitant]
     Active Substance: FLAX SEED
  3. FLUMAZENIL. [Concomitant]
     Active Substance: FLUMAZENIL
  4. FOLIC ACID. [Concomitant]
     Active Substance: FOLIC ACID
  5. NALOXONE [Concomitant]
     Active Substance: NALOXONE
  6. FEROSUL [Concomitant]
     Active Substance: FERROUS SULFATE
  7. LORAZEPAM. [Concomitant]
     Active Substance: LORAZEPAM
  8. MIDALOZAM [Concomitant]
  9. VENLAFAXINE [Concomitant]
     Active Substance: VENLAFAXINE HYDROCHLORIDE
  10. OCALIVA [Suspect]
     Active Substance: OBETICHOLIC ACID
     Indication: PRIMARY BILIARY CHOLANGITIS
     Route: 048
     Dates: start: 20191119
  11. OMEGA 3.69 [Concomitant]
  12. URSODIOL. [Concomitant]
     Active Substance: URSODIOL
  13. DEMEROL [Concomitant]
     Active Substance: MEPERIDINE HYDROCHLORIDE

REACTIONS (1)
  - Pruritus [None]
